FAERS Safety Report 12542358 (Version 1)
Quarter: 2016Q3

REPORT INFORMATION
  Report Type: Spontaneous
  Country: US (occurrence: US)
  Receive Date: 20160708
  Receipt Date: 20160708
  Transmission Date: 20161109
  Serious: No
  Sender: FDA-Public Use
  Company Number: US-TEIKOKU PHARMA USA-TPU2016-00443

PATIENT
  Sex: Female

DRUGS (1)
  1. LIDODERM [Suspect]
     Active Substance: LIDOCAINE
     Indication: PAIN

REACTIONS (1)
  - Drug effect incomplete [Unknown]
